FAERS Safety Report 19119834 (Version 3)
Quarter: 2021Q2

REPORT INFORMATION
  Report Type: Spontaneous
  Country: IN (occurrence: IN)
  Receive Date: 20210412
  Receipt Date: 20210525
  Transmission Date: 20210717
  Serious: Yes (Other)
  Sender: FDA-Public Use
  Company Number: IN-GLENMARK PHARMACEUTICALS-2021GMK053014

PATIENT

DRUGS (3)
  1. TELMA ? H [Suspect]
     Active Substance: HYDROCHLOROTHIAZIDE\TELMISARTAN
     Indication: HYPERTENSION
     Dosage: 1 DOSAGE FORM, AM (MORNING); START DATE: 2010/2011
     Route: 065
     Dates: end: 202103
  2. TELMA ? H [Suspect]
     Active Substance: HYDROCHLOROTHIAZIDE\TELMISARTAN
     Dosage: 1 DOSAGE FORM, AM (MORNING)
     Route: 065
     Dates: start: 20210314
  3. NOVOSTAT [Concomitant]
     Indication: BLOOD CHOLESTEROL ABNORMAL
     Dosage: 10 MILLIGRAM, HS (EVENING)
     Route: 065

REACTIONS (9)
  - Hyperhidrosis [Unknown]
  - Dysentery [Recovered/Resolved]
  - Suspected counterfeit product [Unknown]
  - Nasopharyngitis [Recovered/Resolved]
  - Malaise [Unknown]
  - Cough [Recovered/Resolved]
  - Intentional dose omission [Unknown]
  - Product quality issue [Unknown]
  - Drug ineffective [Unknown]

NARRATIVE: CASE EVENT DATE: 202103
